FAERS Safety Report 10307629 (Version 3)
Quarter: 2014Q3

REPORT INFORMATION
  Report Type: Spontaneous
  Country: US (occurrence: US)
  Receive Date: 20140716
  Receipt Date: 20140804
  Transmission Date: 20150326
  Serious: Yes (Life-Threatening, Hospitalization)
  Sender: FDA-Public Use
  Company Number: 2014SP002845

PATIENT
  Age: 56 Year
  Sex: Male
  Weight: 124.1 kg

DRUGS (17)
  1. OXYCODONE [Concomitant]
     Active Substance: OXYCODONE
     Indication: TOOTHACHE
     Route: 048
     Dates: start: 20140507
  2. PIPERACILLIN AND TAZOBACTAM [Concomitant]
     Active Substance: PIPERACILLIN SODIUM\TAZOBACTAM SODIUM
     Indication: TOOTH INFECTION
     Route: 042
     Dates: start: 20140503
  3. MORPHINE [Concomitant]
     Active Substance: MORPHINE
     Indication: PAIN
     Route: 042
     Dates: start: 20140425, end: 20140504
  4. CYTARABINE. [Suspect]
     Active Substance: CYTARABINE
     Indication: ACUTE LYMPHOCYTIC LEUKAEMIA
     Dates: start: 20140418, end: 20140423
  5. VANCOMYCIN [Concomitant]
     Active Substance: VANCOMYCIN
     Indication: TOOTH INFECTION
     Route: 042
     Dates: start: 20140508
  6. ACETAMINOPHEN. [Concomitant]
     Active Substance: ACETAMINOPHEN
     Indication: PYREXIA
     Route: 042
     Dates: start: 20140506
  7. LORAZEPAM. [Concomitant]
     Active Substance: LORAZEPAM
     Indication: VOMITING
     Route: 042
     Dates: start: 20140406, end: 20140503
  8. CHLORHEXIDINE GLUCONATE. [Concomitant]
     Active Substance: CHLORHEXIDINE GLUCONATE
     Indication: TOOTHACHE
     Dates: start: 20140504
  9. HYDROMORPHONE HYDROCHLORIDE. [Concomitant]
     Active Substance: HYDROMORPHONE HYDROCHLORIDE
     Indication: TOOTHACHE
     Route: 042
     Dates: start: 20140503
  10. INSULIN [Concomitant]
     Active Substance: INSULIN NOS
     Indication: HYPERGLYCAEMIA
     Dates: start: 20140420
  11. ACYCLOVIR /00587301/ [Concomitant]
     Active Substance: ACYCLOVIR
     Indication: PROPHYLAXIS
     Route: 048
     Dates: start: 20140421
  12. ALL OTHER THERAPEUTIC PRODUCTS [Concomitant]
     Active Substance: UNSPECIFIED INGREDIENT
     Indication: MUCOSAL INFLAMMATION
     Dates: start: 20140424, end: 20140503
  13. LORAZEPAM. [Concomitant]
     Active Substance: LORAZEPAM
     Indication: NAUSEA
     Route: 042
     Dates: start: 20140406, end: 20140503
  14. CEFEPIME [Concomitant]
     Active Substance: CEFEPIME\CEFEPIME HYDROCHLORIDE
     Indication: PHARYNGITIS
     Route: 042
     Dates: start: 20140425, end: 20140503
  15. POTASSIUM CHLORIDE. [Concomitant]
     Active Substance: POTASSIUM CHLORIDE
     Indication: HYPOKALAEMIA
     Route: 042
     Dates: start: 20140507
  16. PREDNISONE. [Concomitant]
     Active Substance: PREDNISONE
     Indication: RESPIRATORY TRACT OEDEMA
     Route: 048
     Dates: start: 20140427, end: 20140507
  17. LIDOCAINE. [Concomitant]
     Active Substance: LIDOCAINE
     Indication: TOOTHACHE
     Route: 061
     Dates: start: 20140505, end: 20140505

REACTIONS (11)
  - Pain in jaw [Unknown]
  - Neutropenia [Unknown]
  - Dysphagia [Unknown]
  - Respiratory tract oedema [Recovered/Resolved]
  - Pyrexia [Unknown]
  - Necrotising fasciitis fungal [Recovering/Resolving]
  - Abscess [Unknown]
  - Epiglottic oedema [Unknown]
  - Cellulitis [Unknown]
  - Toothache [Unknown]
  - Hypophagia [Unknown]

NARRATIVE: CASE EVENT DATE: 20140503
